FAERS Safety Report 6401642-4 (Version None)
Quarter: 2009Q4

REPORT INFORMATION
  Report Type: 
  Country: None (occurrence: None)
  Receive Date: 20091015
  Receipt Date: 20091002
  Transmission Date: 20100525
  Serious: Yes (Other)
  Sender: FDA-Public Use
  Company Number: JP-ASTRAZENECA-2009SE11027

PATIENT
  Age: 23778 Day
  Sex: Female
  Weight: 31.3 kg

DRUGS (11)
  1. SEROQUEL [Suspect]
     Indication: HALLUCINATION
     Route: 048
     Dates: start: 20080314, end: 20090819
  2. SEROQUEL [Suspect]
     Indication: DELUSION
     Route: 048
     Dates: start: 20080314, end: 20090819
  3. SEROQUEL [Suspect]
     Indication: INSOMNIA
     Route: 048
     Dates: start: 20080314, end: 20090819
  4. SILECE [Suspect]
     Indication: INSOMNIA
     Route: 048
     Dates: start: 20081105, end: 20090819
  5. PALOLACTIN [Concomitant]
     Indication: PARKINSON'S DISEASE
     Route: 048
     Dates: start: 20070424, end: 20090819
  6. SYMMETREL [Concomitant]
     Indication: PARKINSON'S DISEASE
     Route: 048
     Dates: start: 20080418, end: 20090819
  7. CARCOPA [Concomitant]
     Indication: PARKINSON'S DISEASE
     Route: 048
     Dates: start: 20080104, end: 20090819
  8. PRAMIPEXOLE DIHYDROCHLORIDE [Concomitant]
     Indication: PARKINSON'S DISEASE
     Route: 048
     Dates: start: 20080514, end: 20090819
  9. UBRETID [Concomitant]
     Indication: DYSURIA
     Route: 048
     Dates: start: 20080517, end: 20090819
  10. MUCOTRON [Concomitant]
     Indication: PNEUMONIA
     Route: 048
     Dates: start: 20090809, end: 20090819
  11. GASMOTIN [Concomitant]
     Indication: GASTRITIS
     Route: 048
     Dates: start: 20090424, end: 20090819

REACTIONS (2)
  - ALTERED STATE OF CONSCIOUSNESS [None]
  - HYPERGLYCAEMIA [None]
